FAERS Safety Report 4674176-5 (Version None)
Quarter: 2005Q2

REPORT INFORMATION
  Report Type: 
  Country: None (occurrence: None)
  Receive Date: 20050524
  Receipt Date: 20050524
  Transmission Date: 20051028
  Serious: No
  Sender: FDA-Public Use
  Company Number: None

PATIENT
  Sex: Female
  Weight: 57.4 kg

DRUGS (4)
  1. DUANORUBICIN [Suspect]
     Dosage: 45 MG/M2 IV DAY 1,2,3
     Route: 042
     Dates: start: 20050321
  2. CYTARABINE [Suspect]
     Dosage: 1000 MG/M2 CON DAY 1-7 IV
     Route: 042
  3. ZOSQUIDAR [Suspect]
  4. PLACEBO [Suspect]
     Dosage: 550 MG/DAY IV OVER 6 HOURS DAY 1-3
     Route: 042

REACTIONS (2)
  - DRUG TOXICITY [None]
  - WEIGHT DECREASED [None]
